FAERS Safety Report 7129481-X (Version None)
Quarter: 2010Q4

REPORT INFORMATION
  Report Type: 
  Country: None (occurrence: None)
  Receive Date: 20101130
  Receipt Date: 20101122
  Transmission Date: 20110411
  Serious: Yes (Hospitalization)
  Sender: FDA-Public Use
  Company Number: BR-SANOFI-AVENTIS-2010SA071326

PATIENT
  Age: 76 Year
  Sex: Female

DRUGS (9)
  1. LANTUS [Suspect]
     Route: 058
  2. AUTOPEN 24 [Suspect]
     Dates: end: 20101101
  3. ATACAND [Concomitant]
     Route: 065
  4. CARVEDILOL [Concomitant]
     Route: 065
  5. LASIX [Concomitant]
     Route: 065
  6. ALDACTONE [Concomitant]
     Route: 065
  7. GLUCOFORMIN [Concomitant]
     Route: 065
  8. PLAVIX [Concomitant]
     Route: 065
  9. CRESTOR [Concomitant]
     Route: 065

REACTIONS (4)
  - FATIGUE [None]
  - FEELING ABNORMAL [None]
  - HYPERGLYCAEMIA [None]
  - HYPOGLYCAEMIA [None]
